FAERS Safety Report 9330554 (Version 1)
Quarter: 2013Q2

REPORT INFORMATION
  Report Type: Report from Study
  Country: BR (occurrence: BR)
  Receive Date: 20130605
  Receipt Date: 20130605
  Transmission Date: 20140414
  Serious: Yes (Other)
  Sender: FDA-Public Use
  Company Number: PHHY2013BR054825

PATIENT
  Sex: Male

DRUGS (4)
  1. TEGRETOL [Suspect]
     Dosage: 1 DF, UNK
     Dates: start: 1988, end: 1996
  2. TEGRETOL [Suspect]
     Dosage: UNK UKN, UNK
  3. CARBAMAZEPINE [Suspect]
     Dosage: 1 DF, BID
     Dates: start: 1996, end: 2012
  4. TEGRETOL CR [Suspect]
     Dosage: 1 DF, TID

REACTIONS (3)
  - Visual acuity reduced [Unknown]
  - Memory impairment [Recovered/Resolved]
  - Convulsion [Recovered/Resolved]
